FAERS Safety Report 7615614-5 (Version None)
Quarter: 2011Q3

REPORT INFORMATION
  Report Type: 
  Country: None (occurrence: None)
  Receive Date: 20110711
  Receipt Date: 20110613
  Transmission Date: 20111222
  Serious: Yes (Hospitalization)
  Sender: FDA-Public Use
  Company Number: 14543805

PATIENT
  Age: 66 Year
  Sex: Male

DRUGS (11)
  1. DIGOXIN [Concomitant]
  2. DIHYDROCHLOROTHIAZIDE (HYDROCHLOROTHIAZIDE) [Concomitant]
  3. WARFARIN SODIUM [Suspect]
     Indication: THROMBOSIS PROPHYLAXIS
     Dosage: 2 MILLIGRAM 1 DAY ORAL
     Route: 048
     Dates: start: 20081209
  4. FUROSEMIDE [Concomitant]
  5. PERINDOPRIL (PERINDOPRIL) [Concomitant]
  6. ISOSORBIDE MONONITRATE [Concomitant]
  7. PLACEBO [Suspect]
     Indication: THROMBOSIS PROPHYLAXIS
     Dosage: ORAL
     Route: 048
     Dates: start: 20081209
  8. ALDACTONE [Concomitant]
  9. FOSINOPRIL SODIUM [Concomitant]
  10. METOPROLOL TARTRATE [Concomitant]
  11. BETALOC (METOPROLOL TARTRATE) [Concomitant]

REACTIONS (8)
  - DYSPNOEA [None]
  - ATRIAL FIBRILLATION [None]
  - CHEST DISCOMFORT [None]
  - WHITE BLOOD CELL COUNT INCREASED [None]
  - CONDITION AGGRAVATED [None]
  - CARDIAC FAILURE [None]
  - PALPITATIONS [None]
  - OEDEMA PERIPHERAL [None]
